FAERS Safety Report 7692182-3 (Version None)
Quarter: 2011Q3

REPORT INFORMATION
  Report Type: 
  Country: None (occurrence: None)
  Receive Date: 20110818
  Receipt Date: 20110813
  Transmission Date: 20111222
  Serious: Yes (Death, Life-Threatening, Other)
  Sender: FDA-Public Use
  Company Number: PHHY2011GB73520

PATIENT
  Age: 80 Year
  Sex: Male

DRUGS (2)
  1. ADRENALIN IN OIL INJ [Concomitant]
     Dosage: 1 MG, UNK
  2. ZOLEDRONIC ACID [Suspect]
     Indication: OSTEITIS DEFORMANS
     Dosage: 5 MG, UNK

REACTIONS (18)
  - ATRIAL FLUTTER [None]
  - HYPOXIA [None]
  - BLOOD POTASSIUM INCREASED [None]
  - BLOOD MAGNESIUM INCREASED [None]
  - PNEUMONIA [None]
  - PULMONARY OEDEMA [None]
  - CARDIAC ARREST [None]
  - DILATATION ATRIAL [None]
  - DELIRIUM [None]
  - CARDIAC OUTPUT DECREASED [None]
  - PULMONARY VALVE INCOMPETENCE [None]
  - TRICUSPID VALVE INCOMPETENCE [None]
  - BLOOD ALKALINE PHOSPHATASE INCREASED [None]
  - BUNDLE BRANCH BLOCK RIGHT [None]
  - LEFT VENTRICULAR DYSFUNCTION [None]
  - BIFASCICULAR BLOCK [None]
  - PULSELESS ELECTRICAL ACTIVITY [None]
  - TACHYARRHYTHMIA [None]
